FAERS Safety Report 23908846 (Version 1)
Quarter: 2024Q2

REPORT INFORMATION
  Report Type: Spontaneous
  Country: JP (occurrence: JP)
  Receive Date: 20240528
  Receipt Date: 20240528
  Transmission Date: 20240716
  Serious: Yes (Other)
  Sender: FDA-Public Use
  Company Number: JP-MLMSERVICE-20240502-PI047446-00218-1

PATIENT
  Age: 69 Year
  Sex: Female
  Weight: 64 kg

DRUGS (3)
  1. METHOTREXATE SODIUM [Suspect]
     Active Substance: METHOTREXATE SODIUM
     Indication: Acute myeloid leukaemia
     Dosage: 15 MG/BODY (2 ADMINISTRATIONS)
     Route: 037
  2. CYTARABINE [Concomitant]
     Active Substance: CYTARABINE
     Indication: Acute myeloid leukaemia
     Dosage: 40 MG
     Route: 037
  3. PREDNISOLONE [Concomitant]
     Active Substance: PREDNISOLONE
     Indication: Acute myeloid leukaemia
     Dosage: 10 MG/BODY
     Route: 037

REACTIONS (1)
  - Mucosal inflammation [Unknown]
